FAERS Safety Report 15320118 (Version 13)
Quarter: 2022Q1

REPORT INFORMATION
  Report Type: Spontaneous
  Country: US (occurrence: US)
  Receive Date: 20180827
  Receipt Date: 20220209
  Transmission Date: 20220423
  Serious: Yes (Other)
  Sender: FDA-Public Use
  Company Number: US-PFIZER INC-2018340167

PATIENT
  Age: 52 Year
  Sex: Female
  Weight: 66 kg

DRUGS (13)
  1. LYRICA [Suspect]
     Active Substance: PREGABALIN
     Indication: Fibromyalgia
     Dosage: 2 DF, 2X/DAY
     Dates: start: 2017
  2. LYRICA [Suspect]
     Active Substance: PREGABALIN
     Indication: Gait inability
     Dosage: 1 DF, 2X/DAY (SHE DECIDED TO CUT BACK AND TAKE ON ONE CAPSULE, TWICE A DAY OF PREGABALIN)
     Dates: start: 2018
  3. LYRICA [Suspect]
     Active Substance: PREGABALIN
     Dosage: UNK (2 CAPSULES IN THE MORNING, 2 CAPSULES IN THE EVENING WITH EXTRA CAPSULES TO TAKE AS NEEDED)
  4. LYRICA [Suspect]
     Active Substance: PREGABALIN
     Dosage: 50 MG, 3X/DAY
     Route: 048
     Dates: start: 201808, end: 20190309
  5. LYRICA [Suspect]
     Active Substance: PREGABALIN
     Dosage: 1 DF, 2X/DAY
  6. LYRICA [Suspect]
     Active Substance: PREGABALIN
     Dosage: 25 MG, UNK
  7. LYRICA [Suspect]
     Active Substance: PREGABALIN
     Dosage: 50 MG, 4X/DAY
     Route: 048
  8. LYRICA [Suspect]
     Active Substance: PREGABALIN
     Dosage: 4 DF, DAILY (4 CAPSULES A DAY)
  9. LYRICA [Suspect]
     Active Substance: PREGABALIN
     Dosage: 1 DF, DAILY
  10. LYRICA [Suspect]
     Active Substance: PREGABALIN
     Dosage: 50 MG, 4X/DAY (ONE CAPSULE BY MOUTH FOUR TIMES A DAY)
     Route: 048
  11. LYRICA [Suspect]
     Active Substance: PREGABALIN
     Dosage: UNK
  12. KLONOPIN [Concomitant]
     Active Substance: CLONAZEPAM
     Indication: Anxiety
     Dosage: 50 MG, AS NEEDED (ONE A DAY AS NEEDED)
     Dates: start: 2015
  13. LEXAPRO [Concomitant]
     Active Substance: ESCITALOPRAM OXALATE
     Indication: Depression
     Dosage: 30 MG, 1X/DAY (ONE AND A HALF TABLET OF 20 MG, ONCE A DAY)
     Route: 048

REACTIONS (18)
  - Fall [Unknown]
  - Foot fracture [Unknown]
  - Therapeutic product effect incomplete [Unknown]
  - Intentional product misuse [Unknown]
  - Product prescribing error [Unknown]
  - Neuralgia [Unknown]
  - Vertigo [Unknown]
  - Body height decreased [Unknown]
  - Fatigue [Unknown]
  - Headache [Unknown]
  - Feeling abnormal [Unknown]
  - Migraine [Unknown]
  - Bone disorder [Unknown]
  - Condition aggravated [Unknown]
  - Memory impairment [Unknown]
  - Dizziness [Unknown]
  - Anxiety [Unknown]
  - Bone pain [Unknown]

NARRATIVE: CASE EVENT DATE: 20180101
